FAERS Safety Report 8094459-9 (Version None)
Quarter: 2012Q1

REPORT INFORMATION
  Report Type: 
  Country: None (occurrence: None)
  Receive Date: 20120130
  Receipt Date: 20120119
  Transmission Date: 20120608
  Serious: Yes (Other)
  Sender: FDA-Public Use
  Company Number: DE-JNJFOC-20120109449

PATIENT
  Age: 22 Year
  Sex: Male

DRUGS (1)
  1. REMICADE [Suspect]
     Indication: CROHN'S DISEASE
     Route: 042

REACTIONS (6)
  - LIVER FUNCTION TEST ABNORMAL [None]
  - JAUNDICE [None]
  - DIZZINESS [None]
  - VISUAL IMPAIRMENT [None]
  - BALANCE DISORDER [None]
  - ASTHENIA [None]
